FAERS Safety Report 8306566-3 (Version None)
Quarter: 2012Q2

REPORT INFORMATION
  Report Type: 
  Country: None (occurrence: None)
  Receive Date: 20120420
  Receipt Date: 20120420
  Transmission Date: 20120825
  Serious: No
  Sender: FDA-Public Use
  Company Number: None

PATIENT
  Age: 84 Year
  Sex: Female

DRUGS (1)
  1. FORTEO [Suspect]
     Indication: BONE DISORDER
     Dosage: 2O MCG DAILY SUB-Q
     Route: 058
     Dates: start: 20120315, end: 20120413

REACTIONS (2)
  - DECREASED APPETITE [None]
  - ABDOMINAL PAIN UPPER [None]
